FAERS Safety Report 6330060-2 (Version None)
Quarter: 2009Q3

REPORT INFORMATION
  Report Type: 
  Country: None (occurrence: None)
  Receive Date: 20090826
  Receipt Date: 20090826
  Transmission Date: 20100115
  Serious: Yes (Other)
  Sender: FDA-Public Use
  Company Number: None

PATIENT
  Age: 65 Year
  Sex: Male
  Weight: 106.5953 kg

DRUGS (1)
  1. AVODART [Suspect]
     Indication: BENIGN PROSTATIC HYPERPLASIA
     Dosage: ONE PILL DAILY BUCCAL
     Route: 002
     Dates: start: 20081012, end: 20081211

REACTIONS (2)
  - GYNAECOMASTIA [None]
  - NIPPLE PAIN [None]
